FAERS Safety Report 5202325-9 (Version None)
Quarter: 2006Q4

REPORT INFORMATION
  Report Type: 
  Country: None (occurrence: None)
  Receive Date: 20061003
  Receipt Date: 20060612
  Transmission Date: 20070319
  Serious: Yes (Other)
  Sender: FDA-Public Use
  Company Number: US-JNJFOC-20060403960

PATIENT
  Age: 31 Year
  Sex: Female

DRUGS (1)
  1. ULTRAM SR [Suspect]
     Indication: ABDOMINAL PAIN
     Dosage: 1 - 3 DAILY
     Dates: end: 20060401

REACTIONS (1)
  - CONVULSION [None]
